FAERS Safety Report 8963783 (Version 2)
Quarter: 2013Q1

REPORT INFORMATION
  Report Type: Spontaneous
  Country: US (occurrence: US)
  Receive Date: 20121214
  Receipt Date: 20130115
  Transmission Date: 20140127
  Serious: Yes (Hospitalization, Other)
  Sender: FDA-Public Use
  Company Number: US-SANOFI-AVENTIS-2012SA088614

PATIENT
  Age: 66 Year
  Sex: Male
  Weight: 77.27 kg

DRUGS (9)
  1. PLAVIX [Suspect]
     Indication: CORONARY ARTERIAL STENT INSERTION
     Route: 048
     Dates: start: 20051130
  2. CLOPIDOGREL BISULFATE [Suspect]
     Route: 065
  3. ACETYLSALICYLIC ACID [Suspect]
     Indication: STENT PLACEMENT
     Route: 065
  4. ATENOLOL [Concomitant]
     Indication: BLOOD PRESSURE
  5. DEXLANSOPRAZOLE [Concomitant]
     Indication: GASTROOESOPHAGEAL REFLUX DISEASE
  6. ATORVASTATIN [Concomitant]
     Indication: BLOOD CHOLESTEROL
  7. FISH OIL [Concomitant]
  8. VITAMINS [Concomitant]
  9. PAROXETINE [Concomitant]
     Indication: PANIC ATTACK

REACTIONS (5)
  - Basal cell carcinoma [Recovered/Resolved]
  - Haemorrhage [Recovered/Resolved]
  - Haematoma [Not Recovered/Not Resolved]
  - Fall [Unknown]
  - Haematoma [Unknown]
